FAERS Safety Report 7047216-6 (Version None)
Quarter: 2010Q4

REPORT INFORMATION
  Report Type: 
  Country: None (occurrence: None)
  Receive Date: 20101015
  Receipt Date: 20101006
  Transmission Date: 20110411
  Serious: Yes (Other)
  Sender: FDA-Public Use
  Company Number: DZ-NOVOPROD-316206

PATIENT
  Age: 37 Year
  Sex: Male
  Weight: 85 kg

DRUGS (1)
  1. NOVOMIX 30 FLEXPEN [Suspect]
     Indication: TYPE 1 DIABETES MELLITUS
     Dosage: 26+20 IU
     Dates: start: 20090101

REACTIONS (1)
  - ABDOMINAL PAIN UPPER [None]
